FAERS Safety Report 6761357-X (Version None)
Quarter: 2010Q2

REPORT INFORMATION
  Report Type: 
  Country: None (occurrence: None)
  Receive Date: 20100607
  Receipt Date: 20100514
  Transmission Date: 20101027
  Serious: Yes (Death, Hospitalization)
  Sender: FDA-Public Use
  Company Number: 395071

PATIENT
  Age: 53 Year
  Sex: Female

DRUGS (4)
  1. CYTARABINE [Suspect]
     Indication: LYMPHOMA
     Dosage: 2G/M2, INTRAVENOUS
     Route: 042
     Dates: start: 20090405, end: 20090711
  2. CISPLATIN [Suspect]
     Indication: LYMPHOMA
     Dosage: 100 MG/M 2 MILLIGRAM(S) /SQ. METER, INTRAVENOUS
     Route: 042
     Dates: start: 20090404, end: 20090710
  3. DEXAMETHASONE TAB [Concomitant]
  4. RITUXIMAB [Concomitant]

REACTIONS (19)
  - ADENOMA BENIGN [None]
  - APHASIA [None]
  - ASTHENIA [None]
  - ATAXIA [None]
  - CACHEXIA [None]
  - CARDIAC FAILURE [None]
  - CARDIOPULMONARY FAILURE [None]
  - CARDIOTOXICITY [None]
  - CYTOMEGALOVIRUS INFECTION [None]
  - DRUG INTERACTION [None]
  - DYSPNOEA [None]
  - GASTROINTESTINAL HAEMORRHAGE [None]
  - GASTROINTESTINAL INFLAMMATION [None]
  - GASTROINTESTINAL NECROSIS [None]
  - LUNG DISORDER [None]
  - LYMPHOMA [None]
  - NEPHROPATHY TOXIC [None]
  - NEUROTOXICITY [None]
  - PULMONARY TOXICITY [None]
